FAERS Safety Report 23737415 (Version 1)
Quarter: 2024Q2

REPORT INFORMATION
  Report Type: Spontaneous
  Country: FR (occurrence: FR)
  Receive Date: 20240412
  Receipt Date: 20240412
  Transmission Date: 20240716
  Serious: Yes (Congenital Anomaly, Other)
  Sender: FDA-Public Use
  Company Number: None

PATIENT
  Age: 0 Year
  Sex: Male

DRUGS (2)
  1. KEPPRA [Suspect]
     Active Substance: LEVETIRACETAM
     Indication: Epilepsy
     Dosage: 1250 MILLIGRAM, PER DAY
     Route: 064
  2. VALPROATE SODIUM [Suspect]
     Active Substance: VALPROATE SODIUM
     Indication: Epilepsy
     Dosage: 1000 MILLIGRAM, PER DAY
     Route: 064

REACTIONS (9)
  - Premature baby [Unknown]
  - Transgenerational epigenetic inheritance [Recovered/Resolved]
  - Inguinal hernia [Unknown]
  - Gait disturbance [Not Recovered/Not Resolved]
  - Hypotonia [Not Recovered/Not Resolved]
  - Language disorder [Not Recovered/Not Resolved]
  - Neonatal respiratory distress [Unknown]
  - Intellectual disability [Not Recovered/Not Resolved]
  - Paternal exposure before pregnancy [Unknown]

NARRATIVE: CASE EVENT DATE: 20200302
